FAERS Safety Report 8302113-0 (Version None)
Quarter: 2012Q2

REPORT INFORMATION
  Report Type: 
  Country: None (occurrence: None)
  Receive Date: 20120418
  Receipt Date: 20120328
  Transmission Date: 20120825
  Serious: Yes (Death, Hospitalization, Other)
  Sender: FDA-Public Use
  Company Number: 2012PROUSA01221

PATIENT
  Age: 75 Year
  Sex: Male

DRUGS (5)
  1. PROVENGE [Suspect]
  2. PROVENGE [Suspect]
  3. PROVENGE [Suspect]
     Indication: PROSTATE CANCER METASTATIC
     Dosage: 250 ML, SINGLE, INTRAVENOUS
     Route: 042
     Dates: start: 20110826, end: 20110826
  4. PROVENGE [Suspect]
     Indication: PROSTATE CANCER METASTATIC
     Dosage: 250 ML, SINGLE, INTRAVENOUS
     Route: 042
     Dates: start: 20110909, end: 20110909
  5. PROVENGE [Suspect]
     Indication: PROSTATE CANCER METASTATIC
     Dosage: 250 ML, SINGLE, INTRAVENOUS
     Route: 042
     Dates: start: 20110923, end: 20110923

REACTIONS (29)
  - CULTURE POSITIVE [None]
  - ENCEPHALOPATHY [None]
  - DRUG INEFFECTIVE [None]
  - BENIGN NEOPLASM OF SKIN [None]
  - CHRONIC HEPATIC FAILURE [None]
  - HYPOTENSION [None]
  - DISSEMINATED INTRAVASCULAR COAGULATION [None]
  - FLUID OVERLOAD [None]
  - DIALYSIS [None]
  - HAEMATEMESIS [None]
  - PSEUDOMONAS INFECTION [None]
  - LACTOBACILLUS INFECTION [None]
  - LUNG INFECTION [None]
  - ENDOCARDITIS [None]
  - ANAEMIA [None]
  - MALNUTRITION [None]
  - AORTIC ARTERIOSCLEROSIS [None]
  - ENTEROBACTER INFECTION [None]
  - STAPHYLOCOCCAL BACTERAEMIA [None]
  - CHOLANGITIS SCLEROSING [None]
  - COAGULOPATHY [None]
  - ATRIAL FIBRILLATION [None]
  - FATIGUE [None]
  - HEPATIC CIRRHOSIS [None]
  - KLEBSIELLA INFECTION [None]
  - GASTROINTESTINAL HAEMORRHAGE [None]
  - CHEST PAIN [None]
  - DYSPNOEA [None]
  - CANDIDIASIS [None]
